FAERS Safety Report 5866797-9 (Version None)
Quarter: 2008Q3

REPORT INFORMATION
  Report Type: 
  Country: None (occurrence: None)
  Receive Date: 20080902
  Receipt Date: 20080826
  Transmission Date: 20090109
  Serious: Yes (Hospitalization, Other)
  Sender: FDA-Public Use
  Company Number: US-ABBOTT-08P-163-0464633-00

PATIENT
  Sex: Female

DRUGS (3)
  1. LUPRON [Suspect]
     Indication: DRUG USE FOR UNKNOWN INDICATION
  2. HUMIRA [Suspect]
     Indication: CROHN'S DISEASE
     Route: 058
     Dates: start: 20070101
  3. VENLAFAXINE HCL [Concomitant]
     Indication: DEPRESSION
     Route: 048

REACTIONS (8)
  - ABDOMINAL PAIN [None]
  - ACCIDENTAL EXPOSURE [None]
  - COLITIS [None]
  - HYPOPHAGIA [None]
  - INJECTION SITE PAIN [None]
  - THROMBOSIS [None]
  - VOMITING [None]
  - WEIGHT DECREASED [None]
